FAERS Safety Report 19963922 (Version 1)
Quarter: 2021Q4

REPORT INFORMATION
  Report Type: Spontaneous
  Country: US (occurrence: US)
  Receive Date: 20211018
  Receipt Date: 20211018
  Transmission Date: 20220303
  Serious: Yes (Other)
  Sender: FDA-Public Use
  Company Number: US-GLAXOSMITHKLINE-US2021GSK214029

PATIENT
  Sex: Female

DRUGS (7)
  1. ZANTAC [Suspect]
     Active Substance: RANITIDINE HYDROCHLORIDE
     Indication: Dyspepsia
     Dosage: 150 MG, EVERY OTHER DAY
     Route: 065
     Dates: start: 2005, end: 2012
  2. ZANTAC [Suspect]
     Active Substance: RANITIDINE HYDROCHLORIDE
     Indication: Dyspepsia
     Dosage: 150 MG, EVERY OTHER DAY
     Route: 065
     Dates: start: 2005, end: 2012
  3. ZANTAC [Suspect]
     Active Substance: RANITIDINE HYDROCHLORIDE
     Indication: Dyspepsia
     Dosage: 150 MG, EVERY OTHER DAY
     Route: 065
     Dates: start: 2005, end: 2012
  4. RANITIDINE [Suspect]
     Active Substance: RANITIDINE
     Indication: Dyspepsia
     Dosage: 150 MG, EVERY OTHER DAY
     Route: 065
     Dates: start: 2005, end: 2012
  5. RANITIDINE [Suspect]
     Active Substance: RANITIDINE
     Indication: Dyspepsia
     Dosage: 150 MG, EVERY OTHER DAY
     Route: 065
     Dates: start: 2005, end: 2012
  6. RANITIDINE [Suspect]
     Active Substance: RANITIDINE
     Indication: Dyspepsia
     Dosage: 150 MG, EVERY OTHER DAY
     Route: 065
     Dates: start: 2005, end: 2012
  7. RANITIDINE [Suspect]
     Active Substance: RANITIDINE
     Indication: Dyspepsia
     Dosage: 150 MG, EVERY OTHER DAY
     Route: 065
     Dates: start: 2005, end: 2012

REACTIONS (1)
  - Breast cancer [Unknown]
